FAERS Safety Report 17227827 (Version 1)
Quarter: 2020Q1

REPORT INFORMATION
  Report Type: Spontaneous
  Country: US (occurrence: US)
  Receive Date: 20200103
  Receipt Date: 20200103
  Transmission Date: 20200409
  Serious: No
  Sender: FDA-Public Use
  Company Number: US-AUROBINDO-AUR-APL-2019-064202

PATIENT
  Sex: Female
  Weight: 90 kg

DRUGS (3)
  1. GUAIFENESINANDDEXTROMETHORPHANHYDROBROMIDEEXTENDED-RELEASETABLET (OTC) [Suspect]
     Active Substance: DEXTROMETHORPHAN HYDROBROMIDE\GUAIFENESIN
     Indication: NASAL CONGESTION
  2. GUAIFENESINANDDEXTROMETHORPHANHYDROBROMIDEEXTENDED-RELEASETABLET (OTC) [Suspect]
     Active Substance: DEXTROMETHORPHAN HYDROBROMIDE\GUAIFENESIN
     Indication: COUGH
  3. GUAIFENESINANDDEXTROMETHORPHANHYDROBROMIDEEXTENDED-RELEASETABLET (OTC) [Suspect]
     Active Substance: DEXTROMETHORPHAN HYDROBROMIDE\GUAIFENESIN
     Indication: NASOPHARYNGITIS
     Dosage: 1 DOSAGE FORM, ONCE A DAY
     Route: 065
     Dates: start: 201909, end: 20190926

REACTIONS (2)
  - Pruritus [Unknown]
  - Diarrhoea [Unknown]
